FAERS Safety Report 8888214 (Version 1)
Quarter: 2012Q4

REPORT INFORMATION
  Report Type: 
  Country: US (occurrence: US)
  Receive Date: 20121106
  Receipt Date: 20121106
  Transmission Date: 20130627
  Serious: Yes (Other)
  Sender: FDA-Public Use
  Company Number: US-JNJFOC-20121015044

PATIENT
  Sex: Male
  Weight: 79.38 kg

DRUGS (1)
  1. INVEGA SUSTENNA [Suspect]
     Indication: SCHIZOAFFECTIVE DISORDER BIPOLAR TYPE
     Dosage: between 39mg and 156mg at unspecified times
     Route: 030
     Dates: start: 201206, end: 201209

REACTIONS (14)
  - Immobile [Recovered/Resolved]
  - Disability [Recovered/Resolved]
  - Weight increased [Recovering/Resolving]
  - Metabolic disorder [Recovering/Resolving]
  - Constipation [Recovering/Resolving]
  - Gait disturbance [Recovering/Resolving]
  - Abasia [Recovering/Resolving]
  - Muscle spasms [Recovering/Resolving]
  - Increased appetite [Unknown]
  - Abdominal distension [Recovering/Resolving]
  - Fluid retention [Not Recovered/Not Resolved]
  - Enuresis [Recovering/Resolving]
  - Toothache [Recovering/Resolving]
  - Sleep disorder [Recovering/Resolving]
